FAERS Safety Report 7926928-3 (Version None)
Quarter: 2011Q4

REPORT INFORMATION
  Report Type: 
  Country: None (occurrence: None)
  Receive Date: 20111118
  Receipt Date: 20111107
  Transmission Date: 20120403
  Serious: Yes (Hospitalization)
  Sender: FDA-Public Use
  Company Number: US-ELI_LILLY_AND_COMPANY-US201111000939

PATIENT
  Sex: Male

DRUGS (11)
  1. ILETIN I [Suspect]
     Dosage: UNK, UNKNOWN
  2. METOPROLOL SUCCINATE [Concomitant]
     Dosage: UNK
  3. HUMULIN R [Suspect]
     Dosage: 10 U, EACH EVENING
  4. HUMULIN R [Suspect]
     Indication: DIABETES MELLITUS
     Dosage: 20 U, OTHER
  5. SULFA                              /00150702/ [Concomitant]
  6. HUMULIN N [Suspect]
     Indication: DIABETES MELLITUS
     Dosage: 35 U, EACH MORNING
  7. NEXIUM [Concomitant]
     Dosage: UNK
     Dates: start: 20060101
  8. HUMULIN N [Suspect]
     Dosage: 20 U, EACH EVENING
  9. HUMULIN R [Suspect]
     Dosage: UNK UNK, PRN
  10. HUMALOG [Suspect]
     Dosage: UNK, UNKNOWN
  11. HUMULIN 70/30 [Suspect]
     Dosage: UNK, UNKNOWN

REACTIONS (15)
  - STRESS [None]
  - SURGERY [None]
  - MALAISE [None]
  - GASTROINTESTINAL DISORDER [None]
  - DIARRHOEA [None]
  - INTESTINAL POLYP [None]
  - BLOOD GLUCOSE INCREASED [None]
  - DRUG INEFFECTIVE [None]
  - PAIN [None]
  - ANAESTHETIC COMPLICATION [None]
  - INFECTION [None]
  - DRUG EFFECT DECREASED [None]
  - BLOOD GLUCOSE FLUCTUATION [None]
  - GLYCOSYLATED HAEMOGLOBIN INCREASED [None]
  - RASH MACULAR [None]
